FAERS Safety Report 14461151 (Version 1)
Quarter: 2018Q1

REPORT INFORMATION
  Report Type: Spontaneous
  Country: US (occurrence: US)
  Receive Date: 20180130
  Receipt Date: 20180130
  Transmission Date: 20180509
  Serious: Yes (Other)
  Sender: FDA-Public Use
  Company Number: US-PFIZER INC-2017534697

PATIENT
  Sex: Female

DRUGS (1)
  1. PREMARIN [Suspect]
     Active Substance: ESTROGENS, CONJUGATED
     Indication: PREMATURE MENOPAUSE
     Dosage: 1.25 MG, DAILY
     Dates: start: 1984

REACTIONS (1)
  - SLE arthritis [Unknown]

NARRATIVE: CASE EVENT DATE: 2006
